FAERS Safety Report 20812197 (Version 2)
Quarter: 2022Q2

REPORT INFORMATION
  Report Type: Spontaneous
  Country: BE (occurrence: BE)
  Receive Date: 20220511
  Receipt Date: 20220517
  Transmission Date: 20220721
  Serious: Yes (Other)
  Sender: FDA-Public Use
  Company Number: BE-009507513-2204BEL002083

PATIENT
  Age: 60 Year
  Sex: Male

DRUGS (17)
  1. FLUCLOXACILLIN [Interacting]
     Active Substance: FLUCLOXACILLIN
     Indication: Endocarditis
     Dosage: 2 GRAM, FOUR TIMES/DAY (2 GRAM, Q4H) FOR CATHETER SEPSIS
     Route: 042
  2. FLUCLOXACILLIN [Interacting]
     Active Substance: FLUCLOXACILLIN
     Indication: Bronchopulmonary aspergillosis
  3. FLUCLOXACILLIN [Interacting]
     Active Substance: FLUCLOXACILLIN
     Indication: Device related sepsis
  4. VORICONAZOLE [Interacting]
     Active Substance: VORICONAZOLE
     Indication: Aspergillus infection
     Dosage: 200 MILLIGRAM, TWO TIMES A DAY
     Route: 048
     Dates: start: 2019
  5. CYCLOSPORINE [Suspect]
     Active Substance: CYCLOSPORINE
     Indication: Immunosuppressant drug therapy
     Dosage: UNK,TARGET TROUGH LEVELS 170?200 MCG/L
     Route: 065
  6. CYCLOSPORINE [Suspect]
     Active Substance: CYCLOSPORINE
     Indication: Staphylococcal infection
  7. CYCLOSPORINE [Suspect]
     Active Substance: CYCLOSPORINE
     Indication: Device related sepsis
  8. POSACONAZOLE [Interacting]
     Active Substance: POSACONAZOLE
     Indication: Bronchopulmonary aspergillosis
     Dosage: 300 MILLIGRAM, FOUR TIMES/DAY
     Route: 048
  9. POSACONAZOLE [Interacting]
     Active Substance: POSACONAZOLE
     Indication: Device related sepsis
     Dosage: 324 MILLIGRAM, ONCE A DAY (324 MG, Q24H)
     Route: 065
  10. POSACONAZOLE [Interacting]
     Active Substance: POSACONAZOLE
     Indication: Staphylococcal infection
     Dosage: 300 MILLIGRAM, ONCE A DAY
     Route: 048
  11. POSACONAZOLE [Interacting]
     Active Substance: POSACONAZOLE
     Indication: Antifungal treatment
  12. VALGANCICLOVIR [Suspect]
     Active Substance: VALGANCICLOVIR
     Indication: Antibiotic prophylaxis
     Dosage: UNK
     Route: 065
  13. AMOXICILLIN [Concomitant]
     Active Substance: AMOXICILLIN
     Indication: Endocarditis
     Dosage: UNK
     Route: 042
  14. GENTAMICIN [Concomitant]
     Active Substance: GENTAMICIN
     Indication: Endocarditis
     Dosage: UNK
     Route: 065
  15. METHYLPREDNISOLONE [Concomitant]
     Active Substance: METHYLPREDNISOLONE
     Indication: Immunosuppressant drug therapy
     Dosage: 12 MILLIGRAM, ONCE A DAY
     Route: 048
  16. METHYLPREDNISOLONE [Concomitant]
     Active Substance: METHYLPREDNISOLONE
     Indication: Staphylococcal infection
  17. METHYLPREDNISOLONE [Concomitant]
     Active Substance: METHYLPREDNISOLONE
     Indication: Device related sepsis

REACTIONS (4)
  - Drug interaction [Recovered/Resolved]
  - Drug level decreased [Recovered/Resolved]
  - Underdose [Unknown]
  - Drug level below therapeutic [Unknown]

NARRATIVE: CASE EVENT DATE: 20190101
